FAERS Safety Report 4823334-5 (Version None)
Quarter: 2005Q4

REPORT INFORMATION
  Report Type: 
  Country: None (occurrence: None)
  Receive Date: 20051107
  Receipt Date: 20051024
  Transmission Date: 20060501
  Serious: Yes (Hospitalization)
  Sender: FDA-Public Use
  Company Number: 2005BH002525

PATIENT
  Age: 53 Year
  Sex: Female

DRUGS (4)
  1. LORAZEPAM [Suspect]
     Dosage: 20 TAB;PO
     Route: 048
     Dates: start: 20051021, end: 20051021
  2. CITALOPRAM (CITALOPRAM) [Suspect]
     Dosage: 20 TAB;PO
     Route: 048
     Dates: start: 20051021, end: 20051021
  3. RISPERDAL [Suspect]
     Dosage: 36 TAB;PO
     Route: 048
     Dates: start: 20051021, end: 20051021
  4. STILNOX [Suspect]
     Dosage: 20 TAB;PO
     Route: 048
     Dates: start: 20051021, end: 20051021

REACTIONS (2)
  - MULTIPLE DRUG OVERDOSE INTENTIONAL [None]
  - SOMNOLENCE [None]
